FAERS Safety Report 11585747 (Version 2)
Quarter: 2015Q4

REPORT INFORMATION
  Report Type: Spontaneous
  Country: VE (occurrence: VE)
  Receive Date: 20151001
  Receipt Date: 20151006
  Transmission Date: 20160304
  Serious: Yes (Disabling, Other)
  Sender: FDA-Public Use
  Company Number: PHHY2015VE117251

PATIENT
  Sex: Female

DRUGS (5)
  1. HIPERLIPEN [Concomitant]
     Active Substance: CIPROFIBRATE
     Indication: BLOOD CHOLESTEROL ABNORMAL
     Dosage: 100 MG, QD
     Route: 065
     Dates: end: 201509
  2. NEUPRO [Concomitant]
     Active Substance: ROTIGOTINE
     Indication: PARKINSON^S DISEASE
     Dosage: 2 MG, QD
     Route: 065
     Dates: start: 201505
  3. STALEVO [Suspect]
     Active Substance: CARBIDOPA\ENTACAPONE\LEVODOPA
     Indication: PARKINSON^S DISEASE
     Dosage: 700 MG, QD
     Route: 048
     Dates: start: 2008, end: 2014
  4. STALEVO [Suspect]
     Active Substance: CARBIDOPA\ENTACAPONE\LEVODOPA
     Indication: MUSCLE RIGIDITY
     Dosage: 700 MG, QD (200 MG AT 6 AM, 150 MG AT 10 AM, 150 MG IN THE AFTERNOON AND 200 MG)
     Route: 048
  5. NEUPRO [Concomitant]
     Active Substance: ROTIGOTINE
     Dosage: 8 MG, QD
     Route: 065

REACTIONS (4)
  - Poisoning [Recovering/Resolving]
  - Nervousness [Recovering/Resolving]
  - Parkinsonian crisis [Recovering/Resolving]
  - Abasia [Recovering/Resolving]
